FAERS Safety Report 7625601-9 (Version None)
Quarter: 2011Q3

REPORT INFORMATION
  Report Type: 
  Country: None (occurrence: None)
  Receive Date: 20110713
  Receipt Date: 20110701
  Transmission Date: 20111222
  Serious: Yes (Other)
  Sender: FDA-Public Use
  Company Number: DSA_47039_2011

PATIENT
  Sex: Female
  Weight: 57.6068 kg

DRUGS (8)
  1. LISINOPRIL [Concomitant]
  2. CLONIDINE [Concomitant]
  3. HERCEPTIN [Concomitant]
  4. NIFEDIPINE [Concomitant]
  5. OMEPRAZOLE [Concomitant]
  6. SIMVASTATIN [Concomitant]
  7. CARDIZEM [Suspect]
     Indication: HYPERTENSION
     Dosage: (180 MG BID ORAL), (180 MG QD ORAL)
     Route: 048
     Dates: start: 20110422, end: 20110428
  8. CARDIZEM [Suspect]
     Indication: HYPERTENSION
     Dosage: (180 MG BID ORAL), (180 MG QD ORAL)
     Route: 048
     Dates: end: 20110421

REACTIONS (6)
  - DIZZINESS [None]
  - MUSCULAR WEAKNESS [None]
  - BLOOD PRESSURE INCREASED [None]
  - CHILLS [None]
  - SKIN DISCOLOURATION [None]
  - RASH GENERALISED [None]
